FAERS Safety Report 5101170-2 (Version None)
Quarter: 2006Q3

REPORT INFORMATION
  Report Type: 
  Country: None (occurrence: None)
  Receive Date: 20060911
  Receipt Date: 20060905
  Transmission Date: 20061208
  Serious: Yes (Death, Hospitalization)
  Sender: FDA-Public Use
  Company Number: PHBS2006BR13530

PATIENT
  Age: 101 Year
  Sex: Female

DRUGS (5)
  1. DIOVAN [Suspect]
     Indication: HYPERTENSION
     Dosage: 80 MG, QD
     Route: 048
     Dates: start: 20051001
  2. SUSTRATE [Concomitant]
     Indication: HYPERTENSION
     Dosage: 2 TABLETS/DAY
     Route: 048
  3. ALDACTONE [Concomitant]
     Indication: HYPERTENSION
     Route: 048
  4. SUPRADYN [Concomitant]
     Dosage: 1 TABLET/DAY
     Route: 048
     Dates: start: 20060101, end: 20060306
  5. VITAMINS [Concomitant]
     Dosage: 1 TABLET/DAY
     Route: 048
     Dates: start: 20060101, end: 20060306

REACTIONS (9)
  - ABDOMINAL PAIN [None]
  - ABDOMINAL PAIN UPPER [None]
  - BLOOD PRESSURE DECREASED [None]
  - GASTRITIS [None]
  - INFLAMMATION [None]
  - MALAISE [None]
  - PAIN [None]
  - RENAL FAILURE [None]
  - VOMITING [None]
